FAERS Safety Report 14133217 (Version 8)
Quarter: 2018Q1

REPORT INFORMATION
  Report Type: Spontaneous
  Country: JP (occurrence: JP)
  Receive Date: 20171026
  Receipt Date: 20180321
  Transmission Date: 20180508
  Serious: Yes (Hospitalization)
  Sender: FDA-Public Use
  Company Number: JP-ABBVIE-17P-087-2138231-00

PATIENT
  Age: 13 Year
  Sex: Male

DRUGS (12)
  1. IMURAN [Suspect]
     Active Substance: AZATHIOPRINE
     Indication: CROHN^S DISEASE
     Route: 048
     Dates: start: 20080515
  2. HUMIRA [Suspect]
     Active Substance: ADALIMUMAB
     Indication: INFLAMMATORY BOWEL DISEASE
  3. LACTOBACILLUS CASEI [Concomitant]
     Active Substance: LACTOBACILLUS CASEI
     Indication: GASTROINTESTINAL DISORDER
     Route: 048
     Dates: start: 20120411, end: 20161031
  4. METENOLONE [Concomitant]
     Active Substance: METHENOLONE ENANTHATE
     Indication: OSTEOPOROSIS
     Route: 048
     Dates: start: 20120925, end: 20151214
  5. ELENTAL [Concomitant]
     Active Substance: AMINO ACIDS\CARBOHYDRATES\MINERALS\SOYBEAN OIL\VITAMINS
     Indication: NUTRITIONAL SUPPLEMENTATION
     Route: 048
     Dates: start: 20080427
  6. TOCILIZUMAB. [Suspect]
     Active Substance: TOCILIZUMAB
     Indication: TAKAYASU^S ARTERITIS
     Route: 065
     Dates: start: 20151221
  7. MESALAZINE [Concomitant]
     Active Substance: MESALAMINE
     Indication: CROHN^S DISEASE
     Route: 048
     Dates: start: 20080417
  8. ROXATIDINE ACETATE HYDROCHLORIDE [Concomitant]
     Active Substance: ROXATIDINE ACETATE HYDROCHLORIDE
     Indication: GASTRITIS
     Route: 048
     Dates: start: 20130327
  9. SULFAMETHOXAZOLE AND TRIMETHOPRIM [Concomitant]
     Active Substance: SULFAMETHOXAZOLE\TRIMETHOPRIM
     Indication: INFECTION PROPHYLAXIS
     Route: 048
     Dates: start: 20141110
  10. URSODEOXYCHOLIC ACID [Concomitant]
     Active Substance: URSODIOL
     Indication: LIVER DISORDER
     Route: 048
     Dates: start: 20120119, end: 20160726
  11. LEUPRORELIN ACETATE [Concomitant]
     Active Substance: LEUPROLIDE ACETATE
     Indication: BODY HEIGHT BELOW NORMAL
     Route: 058
     Dates: start: 20130605, end: 20150325
  12. HUMIRA [Suspect]
     Active Substance: ADALIMUMAB
     Indication: CROHN^S DISEASE
     Route: 058
     Dates: start: 20100323, end: 20151214

REACTIONS (12)
  - Lymphadenitis bacterial [Not Recovered/Not Resolved]
  - Device related infection [Recovered/Resolved]
  - Subcutaneous abscess [Recovered/Resolved]
  - Device related infection [Recovered/Resolved]
  - Henoch-Schonlein purpura nephritis [Not Recovered/Not Resolved]
  - Takayasu^s arteritis [Recovering/Resolving]
  - Cellulitis [Recovered/Resolved]
  - Herpes zoster [Recovered/Resolved]
  - Brachiocephalic vein thrombosis [Recovering/Resolving]
  - Henoch-Schonlein purpura [Recovered/Resolved]
  - Device related infection [Recovered/Resolved]
  - Device related infection [Recovered/Resolved]

NARRATIVE: CASE EVENT DATE: 20101022
